FAERS Safety Report 4817598-1 (Version None)
Quarter: 2005Q4

REPORT INFORMATION
  Report Type: 
  Country: None (occurrence: None)
  Receive Date: 20051031
  Receipt Date: 20051020
  Transmission Date: 20060501
  Serious: Yes (Hospitalization)
  Sender: FDA-Public Use
  Company Number: 218779

PATIENT
  Age: 60 Year
  Sex: Male

DRUGS (3)
  1. RAPTIVA [Suspect]
     Indication: PSORIASIS
     Dosage: 1 MG/KG, 1/WEEK, SUBCUTANEOUS
     Route: 058
     Dates: start: 20050920, end: 20051004
  2. ENALAPRIL            (ENALAPRIL MELEATE) [Concomitant]
  3. METFORMIN HCL [Concomitant]

REACTIONS (3)
  - BLISTER [None]
  - CELLULITIS [None]
  - PEMPHIGOID [None]
